FAERS Safety Report 8460650-2 (Version None)
Quarter: 2012Q2

REPORT INFORMATION
  Report Type: 
  Country: None (occurrence: None)
  Receive Date: 20120622
  Receipt Date: 20120612
  Transmission Date: 20120825
  Serious: Yes (Hospitalization, Disabling, Other)
  Sender: FDA-Public Use
  Company Number: US-ABBOTT-12P-163-0934277-00

PATIENT
  Sex: Male
  Weight: 81.72 kg

DRUGS (21)
  1. TIMOLOL MALEATE [Concomitant]
     Indication: PRODUCT USED FOR UNKNOWN INDICATION
     Route: 047
  2. DILAUDID [Concomitant]
     Indication: PAIN
  3. METFORMIN HCL [Concomitant]
     Indication: PRODUCT USED FOR UNKNOWN INDICATION
  4. BISOPROLOL [Concomitant]
     Indication: PRODUCT USED FOR UNKNOWN INDICATION
  5. PREDNISOLONE [Concomitant]
     Indication: PRODUCT USED FOR UNKNOWN INDICATION
     Route: 047
  6. ARTIFICIAL TEARS [Concomitant]
     Indication: PRODUCT USED FOR UNKNOWN INDICATION
  7. HUMIRA [Suspect]
     Indication: PSORIATIC ARTHROPATHY
     Route: 058
     Dates: start: 20110701, end: 20110831
  8. CYMBALTA [Concomitant]
     Indication: DEPRESSION
  9. HYDROMORPHONE HCL [Concomitant]
     Indication: PRODUCT USED FOR UNKNOWN INDICATION
  10. CITRACAL [Concomitant]
     Indication: PRODUCT USED FOR UNKNOWN INDICATION
  11. OXYCONTIN [Concomitant]
     Indication: PAIN
  12. XANAX [Concomitant]
     Indication: ANXIETY
  13. CELEBREX [Concomitant]
     Indication: PRODUCT USED FOR UNKNOWN INDICATION
  14. HOMATROPINE [Concomitant]
     Indication: PRODUCT USED FOR UNKNOWN INDICATION
     Route: 047
  15. PREDNISONE TAB [Concomitant]
     Indication: PSORIATIC ARTHROPATHY
  16. PHENERGAN [Concomitant]
     Indication: PRODUCT USED FOR UNKNOWN INDICATION
  17. ASCORBIC ACID [Concomitant]
     Indication: PRODUCT USED FOR UNKNOWN INDICATION
  18. VITAMIN D [Concomitant]
     Indication: PRODUCT USED FOR UNKNOWN INDICATION
  19. ZIAC [Concomitant]
     Indication: HYPERTENSION
  20. ARTHROTEC [Concomitant]
     Indication: PRODUCT USED FOR UNKNOWN INDICATION
  21. PREDNISONE TAB [Concomitant]

REACTIONS (37)
  - MOBILITY DECREASED [None]
  - PYREXIA [None]
  - PHOTOSENSITIVITY REACTION [None]
  - MYALGIA [None]
  - DEPRESSED MOOD [None]
  - SLEEP DISORDER [None]
  - SKIN MASS [None]
  - PARAESTHESIA [None]
  - SKIN INFECTION [None]
  - SCAR [None]
  - CHEST PAIN [None]
  - PSORIATIC ARTHROPATHY [None]
  - FOLLICULITIS [None]
  - BLINDNESS [None]
  - RASH [None]
  - SJOGREN'S SYNDROME [None]
  - PAIN [None]
  - SCIATICA [None]
  - NAUSEA [None]
  - ABNORMAL SENSATION IN EYE [None]
  - ANGLE CLOSURE GLAUCOMA [None]
  - ARTHROPOD BITE [None]
  - PSORIASIS [None]
  - VITAMIN D DEFICIENCY [None]
  - HEADACHE [None]
  - ERYTHEMA [None]
  - MUSCULAR WEAKNESS [None]
  - BACK PAIN [None]
  - MALAISE [None]
  - VOMITING [None]
  - INTRAOCULAR PRESSURE INCREASED [None]
  - SKIN WOUND [None]
  - ARTHRALGIA [None]
  - CATARACT [None]
  - FATIGUE [None]
  - ANAEMIA [None]
  - EYE PAIN [None]
